FAERS Safety Report 18476334 (Version 1)
Quarter: 2020Q4

REPORT INFORMATION
  Report Type: Report from Study
  Country: IL (occurrence: IL)
  Receive Date: 20201106
  Receipt Date: 20201106
  Transmission Date: 20210114
  Serious: Yes (Hospitalization)
  Sender: FDA-Public Use
  Company Number: IL-TAKEDA-IL202026677

PATIENT

DRUGS (1)
  1. VELAGLUCERASE ALFA [Suspect]
     Active Substance: VELAGLUCERASE ALFA
     Indication: GAUCHER^S DISEASE
     Dosage: 15 INTERNATIONAL UNIT/KILOGRAM, 1X/2WKS
     Route: 042
     Dates: start: 20071021

REACTIONS (4)
  - Haematoma [Recovered/Resolved]
  - Uterovaginal prolapse [Recovered/Resolved]
  - Urinary tract infection [Not Recovered/Not Resolved]
  - Genital infection female [Not Recovered/Not Resolved]

NARRATIVE: CASE EVENT DATE: 20200813
